FAERS Safety Report 25923850 (Version 1)
Quarter: 2025Q4

REPORT INFORMATION
  Report Type: Spontaneous
  Country: AU (occurrence: AU)
  Receive Date: 20251015
  Receipt Date: 20251015
  Transmission Date: 20260118
  Serious: Yes (Hospitalization, Other)
  Sender: RANBAXY
  Company Number: AU-SUN PHARMACEUTICAL INDUSTRIES INC-2025R1-531700

PATIENT

DRUGS (1)
  1. CIPROFLOXACIN [Suspect]
     Active Substance: CIPROFLOXACIN
     Indication: Product used for unknown indication
     Dosage: UNK
     Route: 065

REACTIONS (19)
  - Anxiety [Unknown]
  - Arthralgia [Unknown]
  - Burning sensation [Unknown]
  - Confusional state [Unknown]
  - Depressed mood [Unknown]
  - Dizziness [Unknown]
  - Emotional disorder [Unknown]
  - Eye pain [Unknown]
  - Fatigue [Unknown]
  - Headache [Unknown]
  - Myalgia [Unknown]
  - Nausea [Unknown]
  - Nightmare [Unknown]
  - Pain [Unknown]
  - Pain of skin [Unknown]
  - Palpitations [Unknown]
  - Paraesthesia [Unknown]
  - Rash pruritic [Unknown]
  - Tremor [Unknown]
